FAERS Safety Report 7535756-2 (Version None)
Quarter: 2011Q2

REPORT INFORMATION
  Report Type: 
  Country: None (occurrence: None)
  Receive Date: 20110609
  Receipt Date: 20110318
  Transmission Date: 20111010
  Serious: No
  Sender: FDA-Public Use
  Company Number: US-KINGPHARMUSA00001-K201100301

PATIENT
  Sex: Female
  Weight: 115.19 kg

DRUGS (5)
  1. OTHER CARDIAC PREPARATIONS [Concomitant]
     Indication: CARDIAC DISORDER
     Dosage: UNK
  2. NICOTINE [Concomitant]
     Indication: SMOKING CESSATION THERAPY
     Dosage: UNK
  3. EMBEDA [Suspect]
     Indication: PAIN
     Dosage: 160 MG, BID
     Route: 048
     Dates: start: 20100101
  4. ANTIDEPRESSANTS [Concomitant]
     Indication: DEPRESSION
     Dosage: UNK
  5. CYMBALTA [Concomitant]
     Indication: DEPRESSION
     Dosage: UNK

REACTIONS (8)
  - DRUG WITHDRAWAL SYNDROME [None]
  - HYPERHIDROSIS [None]
  - CHILLS [None]
  - PILOERECTION [None]
  - MEMORY IMPAIRMENT [None]
  - DIARRHOEA [None]
  - NAUSEA [None]
  - DRUG EFFECT DECREASED [None]
